FAERS Safety Report 6195000-8 (Version None)
Quarter: 2009Q2

REPORT INFORMATION
  Report Type: 
  Country: None (occurrence: None)
  Receive Date: 20090519
  Receipt Date: 20090508
  Transmission Date: 20091009
  Serious: Yes (Death, Hospitalization)
  Sender: FDA-Public Use
  Company Number: A0784652A

PATIENT
  Age: 62 Year
  Sex: Male
  Weight: 83.2 kg

DRUGS (5)
  1. AVANDIA [Suspect]
     Indication: DIABETES MELLITUS
     Dosage: 4MG PER DAY
     Route: 048
     Dates: start: 20020601, end: 20050311
  2. DIABETA [Concomitant]
     Dates: start: 20010701, end: 20040901
  3. GLYBURIDE [Concomitant]
  4. MECLIZINE [Concomitant]
  5. NIACIN [Concomitant]

REACTIONS (7)
  - ARTERIOSCLEROSIS [None]
  - CARDIAC FAILURE CONGESTIVE [None]
  - CHEST PAIN [None]
  - CORONARY ARTERY DISEASE [None]
  - DEATH [None]
  - MYOCARDIAL INFARCTION [None]
  - PAIN [None]
